FAERS Safety Report 25706472 (Version 1)
Quarter: 2025Q3

REPORT INFORMATION
  Report Type: Spontaneous
  Country: CH (occurrence: CH)
  Receive Date: 20250820
  Receipt Date: 20250820
  Transmission Date: 20251021
  Serious: Yes (Disabling, Other)
  Sender: SANOFI AVENTIS
  Company Number: CH-SA-2025SA218034

PATIENT
  Age: 64 Year
  Sex: Female

DRUGS (6)
  1. DUPIXENT [Suspect]
     Active Substance: DUPILUMAB
     Indication: Pruritus
     Dates: end: 2025
  2. TICAGRELOR [Concomitant]
     Active Substance: TICAGRELOR
     Dosage: 90.000MG BID
  3. CANDESARTAN [Concomitant]
     Active Substance: CANDESARTAN
     Dosage: 8.000MG QD
  4. ASPIRIN [Concomitant]
     Active Substance: ASPIRIN
     Dosage: 100.000MG QD
  5. ROSUVASTATIN [Concomitant]
     Active Substance: ROSUVASTATIN
     Dosage: 20.000MG QD
  6. ESOMEPRAZOLE [Concomitant]
     Active Substance: ESOMEPRAZOLE
     Dosage: 20.000MG QD

REACTIONS (5)
  - Ophthalmic herpes zoster [Not Recovered/Not Resolved]
  - Pain [Not Recovered/Not Resolved]
  - Acute myocardial infarction [Unknown]
  - Product prescribing issue [Unknown]
  - Product use in unapproved indication [Unknown]

NARRATIVE: CASE EVENT DATE: 20250101
